FAERS Safety Report 17576913 (Version 2)
Quarter: 2020Q2

REPORT INFORMATION
  Report Type: Spontaneous
  Country: US (occurrence: US)
  Receive Date: 20200324
  Receipt Date: 20200413
  Transmission Date: 20200713
  Serious: Yes (Other)
  Sender: FDA-Public Use
  Company Number: US-GLENMARK PHARMACEUTICALS-2020GMK046677

PATIENT

DRUGS (2)
  1. MUCINEX DM [Concomitant]
     Active Substance: DEXTROMETHORPHAN HYDROBROMIDE\GUAIFENESIN
     Indication: INFLUENZA
     Dosage: UNK
     Route: 065
  2. ONDANSETRON TABLETS USP [Suspect]
     Active Substance: ONDANSETRON
     Indication: NAUSEA
     Dosage: 8-12 MG A DAY, 2-3 TIMES DAILY
     Route: 048
     Dates: start: 20200220, end: 20200225

REACTIONS (7)
  - Mental impairment [Recovered/Resolved]
  - Product use in unapproved indication [Unknown]
  - Insomnia [Recovered/Resolved]
  - Paraesthesia [Recovered/Resolved]
  - Loss of personal independence in daily activities [Recovered/Resolved]
  - Eating disorder [Recovered/Resolved]
  - Serotonin syndrome [Recovered/Resolved]

NARRATIVE: CASE EVENT DATE: 2020
